FAERS Safety Report 19218268 (Version 3)
Quarter: 2021Q4

REPORT INFORMATION
  Report Type: Spontaneous
  Country: JP (occurrence: JP)
  Receive Date: 20210502
  Receipt Date: 20211122
  Transmission Date: 20220303
  Serious: Yes (Hospitalization, Disabling, Other)
  Sender: FDA-Public Use
  Company Number: JP-MSD-M2020-23544

PATIENT
  Age: 70 Year
  Sex: Male
  Weight: 60 kg

DRUGS (16)
  1. KEYTRUDA [Suspect]
     Active Substance: PEMBROLIZUMAB
     Indication: Lung squamous cell carcinoma stage IV
     Dosage: 200 MILLIGRAM, Q3W
     Route: 041
     Dates: start: 20200121, end: 20201007
  2. CARBOPLATIN [Concomitant]
     Active Substance: CARBOPLATIN
     Indication: Lung squamous cell carcinoma stage IV
     Dosage: 350 MILLIGRAM, Q3W
     Route: 041
     Dates: start: 20200121, end: 20200401
  3. PACLITAXEL [Concomitant]
     Active Substance: PACLITAXEL
     Indication: Lung squamous cell carcinoma stage IV
     Dosage: 150 MILLIGRAM, Q3W
     Route: 041
     Dates: start: 20200121, end: 20200415
  4. AMLODIPINE BESYLATE [Concomitant]
     Active Substance: AMLODIPINE BESYLATE
     Indication: Product substitution
     Dosage: 5 MILLIGRAM, QD
     Route: 048
     Dates: start: 20200131
  5. ETIZOLAM [Concomitant]
     Active Substance: ETIZOLAM
     Indication: Sleep disorder
     Dosage: 0.5 MILLIGRAM, QD
     Route: 048
     Dates: start: 20200210
  6. LYRICA [Concomitant]
     Active Substance: PREGABALIN
     Indication: Intervertebral disc protrusion
     Dosage: 75 MILLIGRAM, QD
     Route: 048
     Dates: start: 20200302, end: 20200510
  7. LYRICA [Concomitant]
     Active Substance: PREGABALIN
     Dosage: 25 MILLIGRAM, BID
     Route: 048
     Dates: start: 20200511
  8. APREPITANT [Concomitant]
     Active Substance: APREPITANT
     Indication: Therapy change
     Dosage: 125 MILLIGRAM, QD
     Route: 048
  9. APREPITANT [Concomitant]
     Active Substance: APREPITANT
     Dosage: 80 MILLIGRAM, QD
     Route: 048
  10. ZINC [Concomitant]
     Active Substance: ZINC
     Indication: Hypozincaemia
     Dosage: 50 MILLIGRAM, BID
     Route: 048
     Dates: start: 20200826, end: 20201007
  11. SENNOSIDES A AND B [Concomitant]
     Active Substance: SENNOSIDES A AND B
     Indication: Constipation
     Dosage: 24 MILLIGRAM, PRN
     Route: 048
     Dates: start: 20200126
  12. EPERISONE HYDROCHLORIDE [Concomitant]
     Active Substance: EPERISONE HYDROCHLORIDE
     Indication: Intervertebral disc protrusion
     Dosage: 50 GRAM, BID
     Route: 048
     Dates: start: 20200420
  13. TRAMADOL [Concomitant]
     Active Substance: TRAMADOL
     Indication: Intervertebral disc protrusion
     Dosage: 25 MILLIGRAM, TID
     Route: 048
     Dates: start: 20200406
  14. CALONAL [Concomitant]
     Active Substance: ACETAMINOPHEN
     Indication: Oral pain
     Dosage: 500 MILLIGRAM, TID
     Route: 048
     Dates: start: 20200325, end: 20200414
  15. SULFAMETHOXAZOLE\TRIMETHOPRIM [Concomitant]
     Active Substance: SULFAMETHOXAZOLE\TRIMETHOPRIM
     Dosage: 1 DOSAGE FORM, BIW
     Route: 048
     Dates: end: 202102
  16. ALENDRONATE [Concomitant]
     Active Substance: ALENDRONATE SODIUM
     Dosage: 35 MILLIGRAM, QW
     Route: 048
     Dates: end: 202102

REACTIONS (4)
  - Interstitial lung disease [Recovered/Resolved]
  - Adrenal insufficiency [Not Recovered/Not Resolved]
  - Malignant neoplasm progression [Unknown]
  - Renal impairment [Not Recovered/Not Resolved]

NARRATIVE: CASE EVENT DATE: 20200121
